FAERS Safety Report 4785426-9 (Version None)
Quarter: 2005Q3

REPORT INFORMATION
  Report Type: 
  Country: None (occurrence: None)
  Receive Date: 20050929
  Receipt Date: 20050919
  Transmission Date: 20060218
  Serious: Yes (Other)
  Sender: FDA-Public Use
  Company Number: 2005130450

PATIENT
  Age: 85 Year
  Sex: Female
  Weight: 71.6683 kg

DRUGS (3)
  1. NEURONTIN [Suspect]
     Indication: NEUROPATHY PERIPHERAL
     Dosage: 300 MG (300 MG, 1 IN 1 D)
     Dates: start: 20050623
  2. LIPITOR [Concomitant]
  3. ALPRAZOLAM [Concomitant]

REACTIONS (2)
  - CONDITION AGGRAVATED [None]
  - DEAFNESS UNILATERAL [None]
